FAERS Safety Report 7797674-4 (Version None)
Quarter: 2011Q4

REPORT INFORMATION
  Report Type: 
  Country: None (occurrence: None)
  Receive Date: 20111005
  Receipt Date: 20110926
  Transmission Date: 20120403
  Serious: Yes (Other)
  Sender: FDA-Public Use
  Company Number: PHEH2009US00447

PATIENT
  Sex: Male

DRUGS (10)
  1. ZOMETA [Suspect]
     Indication: BONE LOSS
  2. AROMASIN [Concomitant]
  3. PEN-VEE K [Concomitant]
     Dosage: 500 MG, QID
     Route: 048
  4. IBUPROFEN [Concomitant]
     Dosage: 600 MG, Q6H
     Route: 048
  5. CHLORHEXIDINE GLUCONATE [Concomitant]
  6. PRILOSEC [Concomitant]
  7. ZOMETA [Suspect]
     Indication: OSTEOPOROSIS
  8. PAXIL [Concomitant]
  9. VICODIN [Concomitant]
     Dosage: 1 DF, Q4H PRN
     Route: 048
  10. OXYCODONE HCL [Concomitant]

REACTIONS (19)
  - OSTEONECROSIS OF JAW [None]
  - BONE LESION [None]
  - TONSILLAR DISORDER [None]
  - AORTIC CALCIFICATION [None]
  - GLAUCOMA [None]
  - EXPOSED BONE IN JAW [None]
  - HIATUS HERNIA [None]
  - DIVERTICULUM INTESTINAL [None]
  - ARTHRITIS [None]
  - INTERVERTEBRAL DISC DEGENERATION [None]
  - VASCULAR CALCIFICATION [None]
  - LYMPHADENOPATHY [None]
  - ERYTHEMA [None]
  - ATELECTASIS [None]
  - TUBERCULOSIS [None]
  - FACET JOINT SYNDROME [None]
  - THYROID NEOPLASM [None]
  - FACIAL BONES FRACTURE [None]
  - COMPRESSION FRACTURE [None]
